FAERS Safety Report 5655446-0 (Version None)
Quarter: 2008Q1

REPORT INFORMATION
  Report Type: 
  Country: None (occurrence: None)
  Receive Date: 20080307
  Receipt Date: 20080226
  Transmission Date: 20080703
  Serious: Yes (Life-Threatening, Hospitalization, Disabling)
  Sender: FDA-Public Use
  Company Number: US-ELI_LILLY_AND_COMPANY-US200712000752

PATIENT
  Sex: Male
  Weight: 93.424 kg

DRUGS (9)
  1. BYETTA [Suspect]
     Dosage: 5 UG, 2/D
     Route: 058
     Dates: start: 20050601, end: 20050701
  2. BYETTA [Suspect]
     Dosage: 10 UG, 2/D
     Route: 058
     Dates: start: 20050701, end: 20061113
  3. BYETTA [Suspect]
     Dosage: 5 UG, 2/D
     Route: 058
     Dates: start: 20070101, end: 20070201
  4. BYETTA [Suspect]
     Dosage: 10 UG, 2/D
     Route: 058
     Dates: start: 20070201
  5. LANTUS [Concomitant]
     Dosage: 50 U, EACH EVENING
     Route: 058
     Dates: start: 19920101
  6. METFORMIN HCL [Concomitant]
     Dosage: 500 MG, 2/D
     Route: 048
     Dates: start: 19920101
  7. LISINOPRIL [Concomitant]
     Indication: HYPERTENSION
     Dosage: UNK, DAILY (1/D)
     Route: 048
  8. SIMVASTATIN [Concomitant]
     Dosage: 40 MG, DAILY (1/D)
     Route: 048
  9. ASPIRIN [Concomitant]
     Dosage: 81 MG, DAILY (1/D)
     Route: 048

REACTIONS (5)
  - ATELECTASIS [None]
  - HEADACHE [None]
  - PNEUMONIA [None]
  - RUPTURED CEREBRAL ANEURYSM [None]
  - WEIGHT DECREASED [None]
